FAERS Safety Report 10788117 (Version 1)
Quarter: 2015Q1

REPORT INFORMATION
  Report Type: Spontaneous
  Country: US (occurrence: None)
  Receive Date: 20150210
  Receipt Date: 20150210
  Transmission Date: 20150721
  Serious: Yes (Disabling, Other)
  Sender: FDA-Public Use
  Company Number: 2014-20454

PATIENT
  Age: 87 Year
  Sex: Male

DRUGS (18)
  1. FENOFIBRATE. [Concomitant]
     Active Substance: FENOFIBRATE
  2. ALLEGRA (FEXOFENADINE HYDROCHLORIDE) [Concomitant]
  3. METOPROLOL TARTRATE. [Concomitant]
     Active Substance: METOPROLOL TARTRATE
  4. FISH OIL [Concomitant]
     Active Substance: FISH OIL
  5. EYLEA [Suspect]
     Active Substance: AFLIBERCEPT
     Dosage: 2 MG, EVERY 2 MONTHS, INTRAOCULAR
     Route: 031
     Dates: start: 20141002, end: 20141005
  6. FUROSEMIDE. [Concomitant]
     Active Substance: FUROSEMIDE
  7. ALLOPURINOL. [Concomitant]
     Active Substance: ALLOPURINOL
  8. VITAMIN D /00107901/ (ERGOCALCIFEROL) [Concomitant]
  9. HYDROCODONE [Concomitant]
     Active Substance: HYDROCODONE
  10. DIGOXIN. [Concomitant]
     Active Substance: DIGOXIN
  11. CALCIUM [Concomitant]
     Active Substance: CALCIUM
  12. OMPRAZOLE (OMEPRAZOLE) [Concomitant]
  13. CLOPIDOGREL [Concomitant]
     Active Substance: CLOPIDOGREL BISULFATE
  14. PRAVASTATIN SODIUM. [Concomitant]
     Active Substance: PRAVASTATIN SODIUM
  15. ICAPS AREDS (ASCORBIC ACID, BETACAROTENE, COPPER, TOCOPHERYL ACETATE, ZINC OXIDE) [Concomitant]
  16. VITAMIN B COMPLEX [Concomitant]
     Active Substance: CYANOCOBALAMIN\DEXPANTHENOL\NIACINAMIDE\PYRIDOXINE HYDROCHLORIDE\RIBOFLAVIN 5^-PHOSPHATE SODIUM\THIAMINE HYDROCHLORIDE\VITAMIN B COMPLEX
  17. ASPIRIN (ACETYLSALICYLIC ACID) [Concomitant]
     Active Substance: ASPIRIN
  18. FLUNISOLIDE. [Concomitant]
     Active Substance: FLUNISOLIDE

REACTIONS (2)
  - Endophthalmitis [None]
  - Blindness [None]

NARRATIVE: CASE EVENT DATE: 20141002
